FAERS Safety Report 4286261-0 (Version None)
Quarter: 2004Q1

REPORT INFORMATION
  Report Type: 
  Country: None (occurrence: None)
  Receive Date: 20040205
  Receipt Date: 20040205
  Transmission Date: 20041129
  Serious: Yes (Hospitalization)
  Sender: FDA-Public Use
  Company Number: None

PATIENT
  Age: 72 Year
  Sex: Male
  Weight: 136.0791 kg

DRUGS (1)
  1. DIPYRIDAMOLE [Suspect]
     Dosage: 60 MG IV X 1
     Route: 042
     Dates: start: 20040203

REACTIONS (3)
  - BLOOD PRESSURE DECREASED [None]
  - COMA [None]
  - HEART RATE DECREASED [None]
